FAERS Safety Report 5663498-7 (Version None)
Quarter: 2008Q1

REPORT INFORMATION
  Report Type: 
  Country: None (occurrence: None)
  Receive Date: 20080307
  Receipt Date: 20080221
  Transmission Date: 20080703
  Serious: Yes (Hospitalization)
  Sender: FDA-Public Use
  Company Number: 2008-00227

PATIENT
  Age: 51 Year
  Sex: Female

DRUGS (5)
  1. NORCO [Suspect]
     Indication: BACK PAIN
     Dosage: ORAL
     Route: 048
  2. GABAPENTIN [Suspect]
     Dosage: 600 MG, QID, ORAL
     Route: 048
  3. TRAZODONE HYDROCHLORIDE [Suspect]
  4. CYMBALTA [Suspect]
  5. ELAVIL [Concomitant]

REACTIONS (11)
  - AGITATION [None]
  - DELIRIUM [None]
  - DELUSION [None]
  - GASTRIC ULCER PERFORATION [None]
  - IRRITABILITY [None]
  - MULTIPLE DRUG OVERDOSE [None]
  - PAIN [None]
  - POST PROCEDURAL COMPLICATION [None]
  - RESTLESSNESS [None]
  - SCREAMING [None]
  - SEROTONIN SYNDROME [None]
